FAERS Safety Report 12931370 (Version 4)
Quarter: 2016Q4

REPORT INFORMATION
  Report Type: Spontaneous
  Country: FR (occurrence: FR)
  Receive Date: 20161110
  Receipt Date: 20161216
  Transmission Date: 20170207
  Serious: Yes (Hospitalization, Other)
  Sender: FDA-Public Use
  Company Number: FR-PFIZER INC-2016523399

PATIENT
  Age: 40 Year
  Sex: Female
  Weight: 68 kg

DRUGS (5)
  1. CELEBREX [Suspect]
     Active Substance: CELECOXIB
     Indication: RHEUMATOID ARTHRITIS
     Dosage: 200 MG, 2X/DAY
     Route: 065
  2. IMETH [Suspect]
     Active Substance: METHOTREXATE SODIUM
     Dosage: 1 DF, 1X/DAY (SHE ONLY TOOK ONE 10 MG TABLET IN THE MORNING)
     Route: 065
     Dates: start: 20160912
  3. IMETH [Suspect]
     Active Substance: METHOTREXATE SODIUM
     Indication: RHEUMATOID ARTHRITIS
     Dosage: 10 MG, WEEKLY (10 MG,1 IN 1 W)
     Route: 048
     Dates: start: 2015
  4. IMETH [Suspect]
     Active Substance: METHOTREXATE SODIUM
     Dosage: 15 MG, DAILY ONE TAB IN MORNING AND HALF ONE IN EVENING
     Route: 048
     Dates: start: 20160905, end: 20160912
  5. SPECIAFOLDINE [Concomitant]
     Active Substance: FOLIC ACID
     Indication: VITAMIN SUPPLEMENTATION
     Dosage: 10 MG, 1 W
     Route: 065

REACTIONS (6)
  - Drug prescribing error [Unknown]
  - Headache [Recovered/Resolved]
  - Transaminases increased [Recovered/Resolved]
  - Accidental overdose [Recovered/Resolved]
  - Inappropriate schedule of drug administration [Recovered/Resolved]
  - Oral herpes [Recovered/Resolved]

NARRATIVE: CASE EVENT DATE: 20160905
